FAERS Safety Report 8385988-9 (Version None)
Quarter: 2012Q2

REPORT INFORMATION
  Report Type: 
  Country: None (occurrence: None)
  Receive Date: 20120525
  Receipt Date: 20120522
  Transmission Date: 20120825
  Serious: Yes (Death)
  Sender: FDA-Public Use
  Company Number: US-JNJFOC-20120307150

PATIENT
  Sex: Female
  Weight: 54.3 kg

DRUGS (2)
  1. XARELTO [Suspect]
     Indication: HIP ARTHROPLASTY
     Route: 048
     Dates: start: 20120206, end: 20120212
  2. XARELTO [Suspect]
     Indication: THROMBOSIS PROPHYLAXIS
     Route: 048
     Dates: start: 20120206, end: 20120212

REACTIONS (2)
  - INTRA-ABDOMINAL HAEMORRHAGE [None]
  - HAEMATOMA [None]
